FAERS Safety Report 25300279 (Version 1)
Quarter: 2025Q2

REPORT INFORMATION
  Report Type: Report from Study
  Country: US (occurrence: US)
  Receive Date: 20250512
  Receipt Date: 20250512
  Transmission Date: 20250717
  Serious: Yes (Death, Hospitalization)
  Sender: BAYER HEALTHCARE PHARMACEUTICALS INC.
  Company Number: US-BAYER-2025A063417

PATIENT
  Sex: Male
  Weight: 80.272 kg

DRUGS (10)
  1. ADEMPAS [Suspect]
     Active Substance: RIOCIGUAT
  2. ATORVASTATIN CALCIUM [Concomitant]
     Active Substance: ATORVASTATIN CALCIUM
  3. REVLIMID [Concomitant]
     Active Substance: LENALIDOMIDE
  4. MORPHINE SULFATE [Concomitant]
     Active Substance: MORPHINE SULFATE
  5. VITAMINS [Concomitant]
     Active Substance: VITAMINS
  6. XARELTO [Concomitant]
     Active Substance: RIVAROXABAN
  7. MAGNESIUM [Concomitant]
     Active Substance: MAGNESIUM
  8. OXYGEN [Concomitant]
     Active Substance: OXYGEN
  9. BREO ELLIPTA [Concomitant]
     Active Substance: FLUTICASONE FUROATE\VILANTEROL TRIFENATATE
  10. GINKGO [Concomitant]
     Active Substance: GINKGO

REACTIONS (1)
  - Death [Fatal]
